FAERS Safety Report 18197118 (Version 1)
Quarter: 2020Q3

REPORT INFORMATION
  Report Type: Spontaneous
  Country: US (occurrence: US)
  Receive Date: 20200826
  Receipt Date: 20200826
  Transmission Date: 20201103
  Serious: Yes (Hospitalization)
  Sender: FDA-Public Use
  Company Number: None

PATIENT
  Sex: Male

DRUGS (1)
  1. PEMAZYRE [Suspect]
     Active Substance: PEMIGATINIB
     Indication: CHOLANGIOCARCINOMA
     Route: 048
     Dates: start: 20200811

REACTIONS (8)
  - Kidney infection [None]
  - Taste disorder [None]
  - Sepsis [None]
  - Stomatitis [None]
  - Urethritis [None]
  - Therapy interrupted [None]
  - Urinary tract infection [None]
  - Nephrolithiasis [None]
